FAERS Safety Report 8826135 (Version 3)
Quarter: 2012Q4

REPORT INFORMATION
  Report Type: 
  Country: US (occurrence: US)
  Receive Date: 20121008
  Receipt Date: 20121029
  Transmission Date: 20130627
  Serious: Yes (Other)
  Sender: FDA-Public Use
  Company Number: US-JNJFOC-20120912998

PATIENT
  Sex: Male

DRUGS (5)
  1. INVEGA [Suspect]
     Indication: HALLUCINATION, AUDITORY
     Route: 048
  2. INVEGA [Suspect]
     Indication: HALLUCINATION, AUDITORY
     Route: 048
  3. INVEGA [Suspect]
     Indication: HALLUCINATION, AUDITORY
     Route: 048
     Dates: end: 20120817
  4. TRILEPTAL [Concomitant]
     Indication: BIPOLAR DISORDER
     Route: 065
     Dates: start: 20120724
  5. TRILEPTAL [Concomitant]
     Indication: HALLUCINATION, AUDITORY
     Route: 065
     Dates: start: 20120724

REACTIONS (4)
  - Syncope [Recovered/Resolved]
  - Gait disturbance [Recovered/Resolved]
  - Drug ineffective [Unknown]
  - Somnolence [Unknown]
